FAERS Safety Report 6154944-3 (Version None)
Quarter: 2009Q2

REPORT INFORMATION
  Report Type: 
  Country: None (occurrence: None)
  Receive Date: 20090414
  Receipt Date: 20090331
  Transmission Date: 20091009
  Serious: Yes (Other)
  Sender: FDA-Public Use
  Company Number: US-PFIZER INC-2005106530

PATIENT
  Sex: Female
  Weight: 70 kg

DRUGS (4)
  1. PROVERA [Suspect]
     Indication: HORMONE REPLACEMENT THERAPY
     Route: 065
     Dates: start: 19910101, end: 19980101
  2. PREMARIN [Suspect]
     Indication: HORMONE REPLACEMENT THERAPY
     Route: 065
     Dates: start: 19910101, end: 19980101
  3. TRIAM-CO [Concomitant]
     Indication: HYPERTENSION
     Dosage: 37.5 MG, UNK
     Route: 065
     Dates: start: 19960101
  4. NORVASC [Concomitant]
     Indication: HYPERTENSION
     Dosage: 5 MG, UNK
     Route: 065
     Dates: start: 19960101

REACTIONS (1)
  - BREAST CANCER [None]
